FAERS Safety Report 21307274 (Version 2)
Quarter: 2022Q3

REPORT INFORMATION
  Report Type: Report from Study
  Country: US (occurrence: US)
  Receive Date: 20220908
  Receipt Date: 20220911
  Transmission Date: 20221027
  Serious: No
  Sender: FDA-Public Use
  Company Number: US-NOVARTISTESTPH-NVSC2022US202589

PATIENT
  Sex: Female

DRUGS (1)
  1. ENTRESTO [Suspect]
     Active Substance: SACUBITRIL\VALSARTAN
     Indication: Product used for unknown indication
     Dosage: 1.5 DOSAGE FORM, QD (24/26 MG) (0.5 TAB IN MORNING, 1 TAB IN AFTERNOON)
     Route: 048

REACTIONS (2)
  - Wrong technique in product usage process [Unknown]
  - Underdose [Unknown]
